FAERS Safety Report 6649138-9 (Version None)
Quarter: 2010Q1

REPORT INFORMATION
  Report Type: 
  Country: None (occurrence: None)
  Receive Date: 20100324
  Receipt Date: 20100111
  Transmission Date: 20100710
  Serious: Yes (Hospitalization)
  Sender: FDA-Public Use
  Company Number: GB-TEVA-228493ISR

PATIENT
  Age: 63 Year
  Sex: Male

DRUGS (7)
  1. PREDNISOLONE [Suspect]
     Indication: PROSTATE CANCER
     Route: 048
     Dates: start: 20081027
  2. ABIRATERONE ACETATE OR PLACEBO [Suspect]
     Indication: PROSTATE CANCER
     Route: 048
     Dates: start: 20081027, end: 20090426
  3. OXYTETRACYCLINE [Concomitant]
     Route: 048
     Dates: start: 20090407, end: 20090409
  4. DEXAMETHASONE [Concomitant]
     Indication: SPINAL CORD COMPRESSION
     Route: 048
     Dates: start: 20090319
  5. LANSOPRAZOLE [Concomitant]
     Route: 048
     Dates: start: 20090219
  6. DORBANEX [Concomitant]
     Indication: CONSTIPATION
     Route: 048
     Dates: start: 20090319
  7. MORPHINE SULFATE [Concomitant]
     Indication: CANCER PAIN
     Dosage: AS NEEDED
     Route: 048
     Dates: start: 20090319, end: 20090409

REACTIONS (1)
  - RESPIRATORY FAILURE [None]
